FAERS Safety Report 8353868-0 (Version None)
Quarter: 2012Q2

REPORT INFORMATION
  Report Type: 
  Country: None (occurrence: None)
  Receive Date: 20120511
  Receipt Date: 20120125
  Transmission Date: 20120825
  Serious: No
  Sender: FDA-Public Use
  Company Number: US-GLAXOSMITHKLINE-A0963123A

PATIENT
  Age: 77 Year
  Sex: Female

DRUGS (3)
  1. ZOFRAN [Concomitant]
  2. CHEMOTHERAPY [Concomitant]
  3. TYKERB [Suspect]
     Indication: INFLAMMATORY CARCINOMA OF THE BREAST
     Dosage: 1200MG PER DAY
     Route: 048

REACTIONS (2)
  - ABDOMINAL DISCOMFORT [None]
  - VOMITING [None]
